FAERS Safety Report 16033145 (Version 1)
Quarter: 2019Q1

REPORT INFORMATION
  Report Type: Spontaneous
  Country: DK (occurrence: DK)
  Receive Date: 20190305
  Receipt Date: 20190305
  Transmission Date: 20190418
  Serious: Yes (Disabling)
  Sender: FDA-Public Use
  Company Number: DK-ACCORD-110288

PATIENT
  Age: 69 Year
  Sex: Female

DRUGS (15)
  1. ZOLPIDEM [Concomitant]
     Active Substance: ZOLPIDEM\ZOLPIDEM TARTRATE
     Indication: SLEEP DISORDER
     Route: 048
     Dates: start: 201512
  2. FRAGMIN [Concomitant]
     Active Substance: DALTEPARIN SODIUM
     Indication: THROMBOSIS PROPHYLAXIS
     Dosage: STRENGTH: 5.000 ANTI-XE IE
     Dates: start: 20180129
  3. FUCITHALMIC [Concomitant]
     Active Substance: FUSIDIC ACID
     Indication: EYE INFECTION
     Route: 050
     Dates: start: 20180507
  4. SELEXID [Concomitant]
     Indication: CYSTITIS
     Route: 048
     Dates: start: 20180704, end: 20180707
  5. PANTOLOC [Concomitant]
     Active Substance: PANTOPRAZOLE SODIUM
     Indication: GASTROOESOPHAGEAL REFLUX DISEASE
     Dosage: STRENGTH: 40 MG.
     Route: 048
     Dates: start: 20180129
  6. DEXAMETHASONE. [Concomitant]
     Active Substance: DEXAMETHASONE
     Indication: PLASMA CELL MYELOMA
     Dosage: STRENGTH: 40 MG.
     Route: 048
     Dates: start: 20180814
  7. EZETROL [Concomitant]
     Active Substance: EZETIMIBE
     Indication: HYPERCHOLESTEROLAEMIA
     Dosage: STRENGTH: 10 MG.
     Route: 048
     Dates: start: 2008
  8. METOPROLOLSUCCINAT ORION [Concomitant]
     Indication: VENTRICULAR EXTRASYSTOLES
     Dosage: STRENGTH: 25 MG.
     Route: 048
     Dates: start: 20171130
  9. ACICLOVIR 1A FARMA [Concomitant]
     Active Substance: ACYCLOVIR
     Indication: PROPHYLAXIS
     Dosage: STYRKE: 800 MG.
     Route: 048
     Dates: start: 20180129
  10. PAMOL [Concomitant]
     Active Substance: ACETAMINOPHEN
     Indication: PAIN
     Dosage: STRENGTH: 500 MG.
     Route: 048
     Dates: start: 20180212
  11. CETIRIZIN TEVA [Concomitant]
     Indication: URTICARIA
     Dosage: STRENGTH: 10 MG.
     Route: 048
     Dates: start: 20180129
  12. UNIKALK MED D-VITAMIN [Concomitant]
     Indication: OSTEOPOROSIS
     Dosage: DOSE: 1 TABLET MORNING AND EVENING.
     Route: 048
     Dates: start: 20151117
  13. ZOLEDRONIC ACID ACCORD [Suspect]
     Active Substance: ZOLEDRONIC ACID
     Indication: OSTEOPOROSIS
     Dosage: STRENGTH: 4 MG / 5 ML.
     Route: 042
     Dates: start: 201510, end: 201806
  14. MONTELUKAST TEVA [Concomitant]
     Active Substance: MONTELUKAST SODIUM
     Indication: ASTHMA PROPHYLAXIS
     Dosage: STRENGTH: 10 MG.
     Route: 048
     Dates: start: 20180814
  15. VAGIFEM [Concomitant]
     Active Substance: ESTRADIOL
     Indication: HORMONE REPLACEMENT THERAPY
     Dosage: STRENGTH: 10 UG
     Route: 067
     Dates: start: 20150708

REACTIONS (3)
  - Exposed bone in jaw [Not Recovered/Not Resolved]
  - Osteonecrosis of jaw [Not Recovered/Not Resolved]
  - Fistula [Not Recovered/Not Resolved]

NARRATIVE: CASE EVENT DATE: 201806
